FAERS Safety Report 24084062 (Version 1)
Quarter: 2024Q3

REPORT INFORMATION
  Report Type: Spontaneous
  Country: GB (occurrence: GB)
  Receive Date: 20240712
  Receipt Date: 20240712
  Transmission Date: 20241017
  Serious: Yes (Other)
  Sender: SANDOZ
  Company Number: GB-002147023-NVSC2021GB167202

PATIENT
  Age: 37 Year
  Sex: Male

DRUGS (2)
  1. ADALIMUMAB [Suspect]
     Active Substance: ADALIMUMAB\ISOPROPYL ALCOHOL
     Indication: Psoriasis
     Dosage: UNK
     Route: 065
  2. COSENTYX [Suspect]
     Active Substance: SECUKINUMAB
     Indication: Psoriasis
     Dosage: UNK (3 DOSES)
     Route: 042
     Dates: start: 2019

REACTIONS (4)
  - Pulmonary sarcoidosis [Unknown]
  - Dyspnoea [Unknown]
  - Hilar lymphadenopathy [Unknown]
  - Treatment failure [Unknown]
